FAERS Safety Report 16429918 (Version 1)
Quarter: 2019Q2

REPORT INFORMATION
  Report Type: Spontaneous
  Country: US (occurrence: US)
  Receive Date: 20190614
  Receipt Date: 20190614
  Transmission Date: 20190711
  Serious: No
  Sender: FDA-Public Use
  Company Number: US-CELGENEUS-USA-20190603558

PATIENT
  Age: 72 Year
  Sex: Male

DRUGS (1)
  1. OTEZLA [Suspect]
     Active Substance: APREMILAST
     Indication: PSORIATIC ARTHROPATHY
     Dosage: 40 MILLIGRAM
     Route: 048
     Dates: start: 20190601

REACTIONS (7)
  - Diarrhoea [Unknown]
  - Nausea [Unknown]
  - Pruritus [Unknown]
  - Insomnia [Unknown]
  - Decreased appetite [Unknown]
  - Musculoskeletal discomfort [Unknown]
  - Faeces discoloured [Unknown]

NARRATIVE: CASE EVENT DATE: 201906
